FAERS Safety Report 11556727 (Version 3)
Quarter: 2015Q4

REPORT INFORMATION
  Report Type: Spontaneous
  Country: US (occurrence: US)
  Receive Date: 20150925
  Receipt Date: 20151222
  Transmission Date: 20160304
  Serious: No
  Sender: FDA-Public Use
  Company Number: US-ACTELION PHARMACEUTICALS US, INC.-A-NJ2015-116097

PATIENT
  Age: 86 Year
  Sex: Female

DRUGS (2)
  1. COUMADIN [Concomitant]
     Active Substance: WARFARIN SODIUM
     Dosage: UNK
  2. TRACLEER [Suspect]
     Active Substance: BOSENTAN
     Indication: PULMONARY ARTERIAL HYPERTENSION
     Dosage: UNK
     Route: 048

REACTIONS (12)
  - Feeling hot [Unknown]
  - Diabetes mellitus [Unknown]
  - Pruritus [Unknown]
  - Dry skin [Unknown]
  - Hypotension [Unknown]
  - Dizziness [Unknown]
  - Blood glucose decreased [Unknown]
  - Flushing [Unknown]
  - Presyncope [Unknown]
  - Hepatic enzyme increased [Unknown]
  - Ocular icterus [Unknown]
  - Malaise [Unknown]

NARRATIVE: CASE EVENT DATE: 20150906
